FAERS Safety Report 8445413-6 (Version None)
Quarter: 2012Q2

REPORT INFORMATION
  Report Type: 
  Country: None (occurrence: None)
  Receive Date: 20120618
  Receipt Date: 20120613
  Transmission Date: 20120825
  Serious: Yes (Other)
  Sender: FDA-Public Use
  Company Number: BE-PFIZER INC-2012133132

PATIENT
  Age: 73 Year
  Sex: Male
  Weight: 76 kg

DRUGS (8)
  1. OMEPRAZOLE [Concomitant]
     Dosage: 20 MG, UNK
     Route: 048
     Dates: start: 20120201, end: 20120507
  2. SUTENT [Suspect]
     Dosage: 25 MG, 1X/DAY
     Route: 048
     Dates: start: 20110213, end: 20120311
  3. MEDROL [Concomitant]
     Dosage: 32 MG, UNK
     Route: 048
     Dates: start: 20120201
  4. DURAGESIC-100 [Concomitant]
     Dosage: UNK
     Route: 058
     Dates: start: 20120201
  5. OXYNORM [Concomitant]
     Dosage: 10 MG, UNK
     Route: 048
     Dates: start: 20120201
  6. SUTENT [Suspect]
     Dosage: 37.5 MG, 1X/DAY
     Route: 048
     Dates: start: 20120326, end: 20120422
  7. LORMETAZEPAM [Concomitant]
     Dosage: 1 UG, UNK
     Route: 048
  8. SUTENT [Suspect]
     Indication: RENAL CANCER STAGE IV
     Dosage: 50 MG, 1X/DAY
     Route: 048
     Dates: start: 20120123, end: 20120130

REACTIONS (3)
  - HEPATIC ENZYME ABNORMAL [None]
  - CHOLESTASIS [None]
  - HEPATITIS TOXIC [None]
